FAERS Safety Report 8140934-8 (Version None)
Quarter: 2012Q1

REPORT INFORMATION
  Report Type: 
  Country: None (occurrence: None)
  Receive Date: 20120214
  Receipt Date: 20120214
  Transmission Date: 20120608
  Serious: Yes (Life-Threatening)
  Sender: FDA-Public Use
  Company Number: None

PATIENT
  Age: 78 Year
  Sex: Male
  Weight: 80.9 kg

DRUGS (1)
  1. HEPARIN SODIUM 1,000 UNITS IN DEXTROSE 5% [Suspect]
     Indication: DEEP VEIN THROMBOSIS
     Dosage: UNITS IV
     Route: 042
     Dates: start: 20111226, end: 20111226

REACTIONS (5)
  - PHARYNGEAL HAEMORRHAGE [None]
  - HAEMORRHAGE [None]
  - ANAEMIA [None]
  - EPISTAXIS [None]
  - RESPIRATORY DISTRESS [None]
